FAERS Safety Report 12224702 (Version 1)
Quarter: 2016Q1

REPORT INFORMATION
  Report Type: Spontaneous
  Country: US (occurrence: US)
  Receive Date: 20160331
  Receipt Date: 20160331
  Transmission Date: 20160526
  Serious: No
  Sender: FDA-Public Use
  Company Number: US-ASTRAZENECA-2016SE19501

PATIENT

DRUGS (1)
  1. NEXIUM [Suspect]
     Active Substance: ESOMEPRAZOLE MAGNESIUM
     Route: 048

REACTIONS (7)
  - Vitamin C deficiency [Unknown]
  - Vitamin D deficiency [Unknown]
  - Anaemia [Unknown]
  - Vitamin B complex deficiency [Unknown]
  - Overgrowth fungal [Unknown]
  - Malabsorption [Unknown]
  - Malaise [Unknown]
